FAERS Safety Report 5890165-7 (Version None)
Quarter: 2008Q3

REPORT INFORMATION
  Report Type: 
  Country: None (occurrence: None)
  Receive Date: 20080919
  Receipt Date: 20080911
  Transmission Date: 20090109
  Serious: Yes (Other)
  Sender: FDA-Public Use
  Company Number: US-ABBOTT-08P-163-0475211-00

PATIENT
  Sex: Female
  Weight: 59.02 kg

DRUGS (5)
  1. HUMIRA [Suspect]
     Indication: CROHN'S DISEASE
     Route: 058
     Dates: start: 20070101
  2. FLUOXETINE [Concomitant]
     Indication: DEPRESSION
     Route: 048
  3. FLUOXETINE [Concomitant]
     Route: 048
  4. BUPROPION HCL [Concomitant]
     Indication: DEPRESSION
     Route: 048
  5. BUPROPION HCL [Concomitant]
     Route: 048

REACTIONS (12)
  - ARTHRALGIA [None]
  - ARTHROSCOPY [None]
  - FUNGAL INFECTION [None]
  - HEAD INJURY [None]
  - HYPERTENSION [None]
  - INSOMNIA [None]
  - INTERVERTEBRAL DISC PROTRUSION [None]
  - MIGRAINE [None]
  - PAIN IN EXTREMITY [None]
  - RASH [None]
  - ROAD TRAFFIC ACCIDENT [None]
  - TRAUMATIC LIVER INJURY [None]
